FAERS Safety Report 17220422 (Version 2)
Quarter: 2020Q1

REPORT INFORMATION
  Report Type: Report from Study
  Country: IT (occurrence: IT)
  Receive Date: 20191231
  Receipt Date: 20200203
  Transmission Date: 20200409
  Serious: Yes (Hospitalization)
  Sender: FDA-Public Use
  Company Number: IT-MYLANLABS-2019M1132162

PATIENT
  Age: 33 Year
  Sex: Female
  Weight: 60 kg

DRUGS (1)
  1. ARIPIPRAZOLE. [Suspect]
     Active Substance: ARIPIPRAZOLE
     Indication: MENTAL DISORDER
     Dosage: 8 MILLIGRAM, TOTAL
     Route: 048
     Dates: start: 20190803, end: 20190803

REACTIONS (3)
  - Opisthotonus [Recovering/Resolving]
  - Medication error [Recovering/Resolving]
  - Trismus [Recovering/Resolving]

NARRATIVE: CASE EVENT DATE: 20190803
